FAERS Safety Report 7635491-6 (Version None)
Quarter: 2011Q3

REPORT INFORMATION
  Report Type: 
  Country: None (occurrence: None)
  Receive Date: 20110726
  Receipt Date: 20110726
  Transmission Date: 20111222
  Serious: Yes (Other)
  Sender: FDA-Public Use
  Company Number: None

PATIENT
  Age: 34 Year
  Sex: Female
  Weight: 54.431 kg

DRUGS (1)
  1. CHANTIX [Suspect]
     Indication: SMOKING CESSATION THERAPY
     Dosage: 1MG
     Route: 048
     Dates: start: 20110629, end: 20110706

REACTIONS (5)
  - RASH ERYTHEMATOUS [None]
  - DYSARTHRIA [None]
  - GAIT DISTURBANCE [None]
  - EUPHORIC MOOD [None]
  - HYPERSENSITIVITY [None]
